FAERS Safety Report 19483856 (Version 2)
Quarter: 2021Q3

REPORT INFORMATION
  Report Type: Spontaneous
  Country: CA (occurrence: CA)
  Receive Date: 20210701
  Receipt Date: 20210907
  Transmission Date: 20211014
  Serious: Yes (Hospitalization)
  Sender: FDA-Public Use
  Company Number: CA-TEVA-2021-CA-1927392

PATIENT
  Age: 5 Decade
  Sex: Female

DRUGS (2)
  1. METHOTREXATE. [Suspect]
     Active Substance: METHOTREXATE
     Dosage: DOUBLED THE DOSE OF SUBCUTANEOUS METHOTREXATE TO 40MG WEEKLY.
     Route: 058
  2. METHOTREXATE. [Suspect]
     Active Substance: METHOTREXATE
     Indication: RHEUMATOID ARTHRITIS
     Dosage: EVERY SUNDAY
     Route: 058

REACTIONS (5)
  - Toxicity to various agents [Unknown]
  - Mouth ulceration [Recovered/Resolved]
  - Abdominal pain [Recovered/Resolved]
  - Pancytopenia [Recovered/Resolved]
  - Intentional product misuse [Unknown]
